FAERS Safety Report 18642231 (Version 2)
Quarter: 2021Q1

REPORT INFORMATION
  Report Type: Spontaneous
  Country: US (occurrence: US)
  Receive Date: 20201221
  Receipt Date: 20210215
  Transmission Date: 20210419
  Serious: No
  Sender: FDA-Public Use
  Company Number: US-BAYER-2020-282416

PATIENT
  Age: 25 Year
  Sex: Female

DRUGS (1)
  1. MIRENA [Suspect]
     Active Substance: LEVONORGESTREL
     Indication: CONTRACEPTION
     Dosage: 20 ?G PER DAY CONTINUOUSLY
     Route: 015
     Dates: start: 20201022, end: 20201203

REACTIONS (3)
  - Dyspareunia [None]
  - Abdominal pain lower [Not Recovered/Not Resolved]
  - Medical device pain [Not Recovered/Not Resolved]

NARRATIVE: CASE EVENT DATE: 2020
